FAERS Safety Report 8823625 (Version 4)
Quarter: 2013Q1

REPORT INFORMATION
  Report Type: Report from Study
  Country: US (occurrence: US)
  Receive Date: 20121003
  Receipt Date: 20130219
  Transmission Date: 20140127
  Serious: Yes (Hospitalization)
  Sender: FDA-Public Use
  Company Number: US-VERTEX PHARMACEUTICAL INC.-2012-021174

PATIENT
  Age: 6 Year
  Sex: Female
  Weight: 43 kg

DRUGS (1)
  1. VX-770 [Suspect]
     Indication: CYSTIC FIBROSIS
     Dosage: 150 MG, BID
     Dates: start: 20120421

REACTIONS (3)
  - Distal intestinal obstruction syndrome [Recovered/Resolved]
  - Constipation [Recovered/Resolved]
  - Weight increased [Not Recovered/Not Resolved]
